FAERS Safety Report 21029578 (Version 2)
Quarter: 2022Q3

REPORT INFORMATION
  Report Type: Spontaneous
  Country: US (occurrence: US)
  Receive Date: 20220630
  Receipt Date: 20220708
  Transmission Date: 20221026
  Serious: Yes (Hospitalization)
  Sender: FDA-Public Use
  Company Number: US-ALLERGAN-2220975US

PATIENT
  Sex: Female
  Weight: 74.842 kg

DRUGS (28)
  1. NAMENDA [Suspect]
     Active Substance: MEMANTINE HYDROCHLORIDE
     Indication: Central pain syndrome
     Dosage: 20 MG, BID
     Route: 048
     Dates: start: 20220505
  2. NAMENDA [Suspect]
     Active Substance: MEMANTINE HYDROCHLORIDE
     Dosage: 15 MG, BID
     Route: 048
     Dates: start: 20220327, end: 20220505
  3. NAMENDA [Suspect]
     Active Substance: MEMANTINE HYDROCHLORIDE
     Dosage: 10 MG, QD
     Route: 048
     Dates: start: 20220320, end: 20220327
  4. NAMENDA [Suspect]
     Active Substance: MEMANTINE HYDROCHLORIDE
     Dosage: 5 MG, QD
     Route: 048
     Dates: start: 20220312, end: 20220320
  5. RESTASIS [Concomitant]
     Active Substance: CYCLOSPORINE
     Indication: Dry eye
     Dosage: UNK
  6. REFRESH TEARS [Concomitant]
     Active Substance: CARBOXYMETHYLCELLULOSE SODIUM
     Indication: Dry eye
     Dosage: UNK
  7. KETAMINE [Concomitant]
     Active Substance: KETAMINE
  8. BACLOFEN [Concomitant]
     Active Substance: BACLOFEN
     Indication: Central pain syndrome
     Dosage: UNK
  9. DIAZEPAM [Concomitant]
     Active Substance: DIAZEPAM
     Indication: Central pain syndrome
     Dosage: UNK
  10. DICLOFENAC DIETHYLAMINE [Concomitant]
     Active Substance: DICLOFENAC DIETHYLAMINE
     Indication: Neck pain
     Dosage: UNK
  11. DICLOFENAC DIETHYLAMINE [Concomitant]
     Active Substance: DICLOFENAC DIETHYLAMINE
     Indication: Arthralgia
  12. LIDOCAINE PATCH [Concomitant]
     Active Substance: LIDOCAINE
     Indication: Pain
     Dosage: UNK
  13. ZOLPIDEM [Concomitant]
     Active Substance: ZOLPIDEM TARTRATE
     Indication: Sleep disorder
     Dosage: UNK
  14. WELLBUTRIN [Concomitant]
     Active Substance: BUPROPION HYDROCHLORIDE
     Indication: Anxiety
     Dosage: UNK
  15. WELLBUTRIN [Concomitant]
     Active Substance: BUPROPION HYDROCHLORIDE
     Indication: Depression
  16. ATORVASTATIN [Concomitant]
     Active Substance: ATORVASTATIN
     Indication: Blood cholesterol increased
     Dosage: UNK
  17. PENTASA [Concomitant]
     Active Substance: MESALAMINE
     Indication: Crohn^s disease
     Dosage: UNK
  18. LINZEST [Concomitant]
     Indication: Constipation
     Dosage: UNK
  19. OMEPRAZOLE [Concomitant]
     Active Substance: OMEPRAZOLE
     Indication: Gastrooesophageal reflux disease
     Dosage: UNK
  20. ALBUTEROL [Concomitant]
     Active Substance: ALBUTEROL
     Dosage: UNK
  21. FLODIN [ASTEMIZOLE] [Concomitant]
     Indication: Asthma
     Dosage: UNK
  22. FLODIN [ASTEMIZOLE] [Concomitant]
     Indication: Chronic obstructive pulmonary disease
  23. FLUOCINOLONE [Concomitant]
     Active Substance: FLUOCINOLONE
     Indication: Eczema
     Dosage: UNK
  24. EMP MICRONUTRIENTS [Concomitant]
     Indication: Supplementation therapy
     Dosage: UNK
     Route: 060
  25. CYANOCOBALAMIN [Concomitant]
     Active Substance: CYANOCOBALAMIN
     Indication: Supplementation therapy
     Dosage: UNK
  26. VITAMIN D NOS [Concomitant]
     Active Substance: VITAMIN D NOS
     Dosage: UNK
  27. FISH OIL [Concomitant]
     Active Substance: FISH OIL
     Indication: Supplementation therapy
     Dosage: UNK
  28. HERBALS\TURMERIC [Concomitant]
     Active Substance: HERBALS\TURMERIC
     Indication: Supplementation therapy
     Dosage: UNK

REACTIONS (10)
  - Hypersensitivity [Recovered/Resolved]
  - Lower limb fracture [Recovered/Resolved with Sequelae]
  - Swelling face [Recovering/Resolving]
  - Peripheral swelling [Recovering/Resolving]
  - Off label use [Unknown]
  - Fall [Recovered/Resolved]
  - Nausea [Recovering/Resolving]
  - Bladder dysfunction [Not Recovered/Not Resolved]
  - Hypertension [Recovering/Resolving]
  - Pain [Recovered/Resolved with Sequelae]

NARRATIVE: CASE EVENT DATE: 20220422
